FAERS Safety Report 8550290-9 (Version None)
Quarter: 2012Q3

REPORT INFORMATION
  Report Type: 
  Country: None (occurrence: None)
  Receive Date: 20120730
  Receipt Date: 20120726
  Transmission Date: 20120928
  Serious: Yes (Death, Other)
  Sender: FDA-Public Use
  Company Number: PHHY2012JP064434

PATIENT
  Age: 51 Year
  Sex: Male

DRUGS (7)
  1. VINCRISTINE [Suspect]
     Indication: B-CELL LYMPHOMA
  2. DOXORUBICIN HYDROCHLORIDE [Suspect]
     Indication: B-CELL LYMPHOMA
     Dosage: 80 MG, UNK
  3. DIPOTASSIUM PHOSPHATE [Concomitant]
     Indication: HYPOPHOSPHATAEMIA
  4. ALLOPURINOL [Concomitant]
  5. SODIUM BICARBONATE [Concomitant]
     Indication: METABOLIC ACIDOSIS
  6. METHYLPREDNISOLONE [Suspect]
     Dosage: 250 MG, UNK
  7. CYCLOPHOSPHAMIDE [Suspect]
     Indication: B-CELL LYMPHOMA
     Dosage: 1200 MG, UNK

REACTIONS (5)
  - CONCOMITANT DISEASE AGGRAVATED [None]
  - TUMOUR LYSIS SYNDROME [None]
  - GASTROINTESTINAL HAEMORRHAGE [None]
  - DISSEMINATED INTRAVASCULAR COAGULATION [None]
  - HYPERPHOSPHATAEMIA [None]
